FAERS Safety Report 11426910 (Version 1)
Quarter: 2015Q3

REPORT INFORMATION
  Report Type: Spontaneous
  Country: US (occurrence: US)
  Receive Date: 20150821
  Receipt Date: 20150821
  Transmission Date: 20151125
  Serious: No
  Sender: FDA-Public Use
  Company Number: US-ELI_LILLY_AND_COMPANY-US201309001611

PATIENT
  Sex: Female

DRUGS (10)
  1. SIMVASTIN [Concomitant]
     Active Substance: SIMVASTATIN
  2. INDAPAMIDE. [Concomitant]
     Active Substance: INDAPAMIDE
  3. LISINOPRIL. [Concomitant]
     Active Substance: LISINOPRIL
  4. TOPROL XL [Concomitant]
     Active Substance: METOPROLOL SUCCINATE
  5. PROBENECID. [Concomitant]
     Active Substance: PROBENECID
  6. BUMETANIDE. [Concomitant]
     Active Substance: BUMETANIDE
  7. FUROSEMIDE. [Concomitant]
     Active Substance: FUROSEMIDE
  8. INSULIN HUMAN [Suspect]
     Active Substance: INSULIN HUMAN
     Dosage: UNK
  9. VERAPAMIL [Concomitant]
     Active Substance: VERAPAMIL HYDROCHLORIDE
  10. ALLOPURINOL. [Concomitant]
     Active Substance: ALLOPURINOL

REACTIONS (1)
  - Visual acuity reduced [Not Recovered/Not Resolved]
